FAERS Safety Report 7969800-5 (Version None)
Quarter: 2011Q4

REPORT INFORMATION
  Report Type: 
  Country: None (occurrence: None)
  Receive Date: 20111212
  Receipt Date: 20111130
  Transmission Date: 20120403
  Serious: Yes (Other)
  Sender: FDA-Public Use
  Company Number: US-BAYER-2011-061334

PATIENT
  Age: 17 Year
  Sex: Female
  Weight: 66.667 kg

DRUGS (9)
  1. YASMIN [Suspect]
     Indication: ACNE
     Dosage: UNK
  2. PROTON PUMP INHIBITORS [Concomitant]
  3. NSAID'S [Concomitant]
  4. YAZ [Suspect]
     Indication: ACNE
     Dosage: UNK
     Dates: start: 20081101, end: 20091201
  5. DROSPIRENONE AND ETHINYL ESTRADIOL [Suspect]
     Dosage: UNK
     Dates: start: 20081001, end: 20081101
  6. YASMIN [Suspect]
     Indication: CONTRACEPTION
     Dosage: UNK
     Route: 048
     Dates: start: 20091201, end: 20100101
  7. YAZ [Suspect]
     Dosage: UNK
     Dates: start: 20100101, end: 20100401
  8. YASMIN [Suspect]
     Dosage: UNK
  9. YAZ [Suspect]
     Indication: CONTRACEPTION
     Dosage: UNK
     Route: 048
     Dates: start: 20070201, end: 20081001

REACTIONS (4)
  - ABDOMINAL PAIN UPPER [None]
  - BILIARY DYSKINESIA [None]
  - CHOLECYSTECTOMY [None]
  - DYSPEPSIA [None]
